FAERS Safety Report 9668452 (Version 1)
Quarter: 2013Q4

REPORT INFORMATION
  Report Type: Spontaneous
  Country: US (occurrence: US)
  Receive Date: 20131105
  Receipt Date: 20131105
  Transmission Date: 20140711
  Serious: No
  Sender: FDA-Public Use
  Company Number: US-US-EMD SERONO, INC.-7245848

PATIENT
  Age: 58 Year
  Sex: Female

DRUGS (1)
  1. REBIF [Suspect]
     Indication: PRODUCT USED FOR UNKNOWN INDICATION
     Route: 058
     Dates: start: 201308

REACTIONS (4)
  - Abdominal pain upper [Recovering/Resolving]
  - Migraine [Not Recovered/Not Resolved]
  - Influenza like illness [Recovering/Resolving]
  - Thyroid function test abnormal [Not Recovered/Not Resolved]
